FAERS Safety Report 23020501 (Version 1)
Quarter: 2023Q4

REPORT INFORMATION
  Report Type: Spontaneous
  Country: US (occurrence: US)
  Receive Date: 20231003
  Receipt Date: 20231003
  Transmission Date: 20240110
  Serious: Yes (Other)
  Sender: FDA-Public Use
  Company Number: US-GILEAD-2023-0645542

PATIENT
  Age: 66 Year
  Sex: Male
  Weight: 78.1 kg

DRUGS (1)
  1. YESCARTA [Suspect]
     Active Substance: AXICABTAGENE CILOLEUCEL
     Indication: Diffuse large B-cell lymphoma
     Dosage: UNK
     Route: 065
     Dates: start: 20230103, end: 20230103

REACTIONS (7)
  - Cytokine release syndrome [Unknown]
  - Encephalopathy [Unknown]
  - Confusional state [Unknown]
  - Memory impairment [Unknown]
  - Aphasia [Unknown]
  - Somnolence [Unknown]
  - Fatigue [Unknown]

NARRATIVE: CASE EVENT DATE: 20230104
